FAERS Safety Report 7441537-0 (Version None)
Quarter: 2011Q2

REPORT INFORMATION
  Report Type: 
  Country: None (occurrence: None)
  Receive Date: 20110428
  Receipt Date: 20110415
  Transmission Date: 20111010
  Serious: Yes (Other)
  Sender: FDA-Public Use
  Company Number: CA-JNJFOC-20110407476

PATIENT
  Sex: Male
  Weight: 97 kg

DRUGS (4)
  1. METOPROLOL [Concomitant]
     Route: 048
  2. REMICADE [Suspect]
     Indication: ANKYLOSING SPONDYLITIS
     Route: 042
  3. ELAVIL [Concomitant]
  4. LIPITOR [Concomitant]

REACTIONS (4)
  - BACK PAIN [None]
  - IMMOBILE [None]
  - FLUSHING [None]
  - ERYTHEMA [None]
